FAERS Safety Report 5417546-X (Version None)
Quarter: 2007Q3

REPORT INFORMATION
  Report Type: 
  Country: None (occurrence: None)
  Receive Date: 20070718
  Receipt Date: 20070419
  Transmission Date: 20080115
  Serious: Yes (Disabling, Other)
  Sender: FDA-Public Use
  Company Number: 2007031652

PATIENT
  Sex: Male

DRUGS (3)
  1. CELEBREX [Suspect]
     Dates: start: 19990801, end: 20000101
  2. BEXTRA [Suspect]
     Dates: start: 19990801, end: 20000101
  3. VIOXX [Suspect]
     Dosage: ORAL
     Route: 048
     Dates: start: 19991101

REACTIONS (5)
  - CARDIAC FAILURE [None]
  - CONSTIPATION [None]
  - DYSPEPSIA [None]
  - HAEMORRHAGE [None]
  - VOMITING [None]
